FAERS Safety Report 17872858 (Version 1)
Quarter: 2020Q2

REPORT INFORMATION
  Report Type: Spontaneous
  Country: US (occurrence: US)
  Receive Date: 20200608
  Receipt Date: 20200608
  Transmission Date: 20200714
  Serious: No
  Sender: FDA-Public Use
  Company Number: US-009507513-2006USA001650

PATIENT
  Age: 51 Year
  Sex: Male

DRUGS (1)
  1. CUBICIN [Suspect]
     Active Substance: DAPTOMYCIN
     Indication: STAPHYLOCOCCAL INFECTION
     Dosage: 8/8/12 MG/KG AFTER HEMODIALYSIS

REACTIONS (2)
  - Incorrect dosage administered [Unknown]
  - Drug ineffective [Unknown]
